FAERS Safety Report 4737989-7 (Version None)
Quarter: 2005Q3

REPORT INFORMATION
  Report Type: 
  Country: None (occurrence: None)
  Receive Date: 20050805
  Receipt Date: 20050805
  Transmission Date: 20060218
  Serious: Yes (Other)
  Sender: FDA-Public Use
  Company Number: None

PATIENT
  Age: 42 Year
  Sex: Male
  Weight: 77.5651 kg

DRUGS (1)
  1. OXYCODONE EXTENED RELEASE ENDO [Suspect]
     Indication: BACK PAIN
     Dosage: 40 MG 5 PO BID
     Route: 048
     Dates: start: 20050601

REACTIONS (3)
  - ABDOMINAL PAIN [None]
  - PRURITUS [None]
  - THERAPEUTIC RESPONSE UNEXPECTED WITH DRUG SUBSTITUTION [None]
